FAERS Safety Report 11226047 (Version 1)
Quarter: 2015Q2

REPORT INFORMATION
  Report Type: Spontaneous
  Country: US (occurrence: US)
  Receive Date: 20150629
  Receipt Date: 20150629
  Transmission Date: 20150821
  Serious: Yes (Death, Other)
  Sender: FDA-Public Use
  Company Number: US-CELGENEUS-USA-2015032880

PATIENT
  Age: 83 Year
  Sex: Male

DRUGS (1)
  1. REVLIMID [Suspect]
     Active Substance: LENALIDOMIDE
     Indication: PLASMA CELL MYELOMA
     Dosage: 10 MILLIGRAM
     Route: 048
     Dates: start: 20141203, end: 20150303

REACTIONS (4)
  - Sepsis [Fatal]
  - Acute kidney injury [Fatal]
  - Pneumonia [Fatal]
  - Pancytopenia [Unknown]

NARRATIVE: CASE EVENT DATE: 20150309
